FAERS Safety Report 6338106-2 (Version None)
Quarter: 2009Q3

REPORT INFORMATION
  Report Type: 
  Country: None (occurrence: None)
  Receive Date: 20090902
  Receipt Date: 20090901
  Transmission Date: 20100115
  Serious: Yes (Death, Hospitalization)
  Sender: FDA-Public Use
  Company Number: PHEH2009US06774

PATIENT
  Sex: Male
  Weight: 81.9 kg

DRUGS (1)
  1. GLEEVEC [Suspect]
     Indication: BRAIN NEOPLASM MALIGNANT
     Dosage: 400 MG, QD
     Route: 048
     Dates: start: 20090114, end: 20090131

REACTIONS (2)
  - BRAIN NEOPLASM MALIGNANT [None]
  - CEREBRAL HAEMORRHAGE [None]
